FAERS Safety Report 5507240-9 (Version None)
Quarter: 2007Q4

REPORT INFORMATION
  Report Type: 
  Country: None (occurrence: None)
  Receive Date: 20071105
  Receipt Date: 20071105
  Transmission Date: 20080405
  Serious: Yes (Other)
  Sender: FDA-Public Use
  Company Number: None

PATIENT
  Sex: Female

DRUGS (1)
  1. OPTIRAY 350 [Suspect]
     Indication: HEADACHE
     Dosage: 100CC 2CC PER/SEC RT AC
     Dates: start: 20071012

REACTIONS (2)
  - SNEEZING [None]
  - URTICARIA [None]
